FAERS Safety Report 7689169-3 (Version None)
Quarter: 2011Q3

REPORT INFORMATION
  Report Type: 
  Country: None (occurrence: None)
  Receive Date: 20110817
  Receipt Date: 20110812
  Transmission Date: 20111222
  Serious: Yes (Other)
  Sender: FDA-Public Use
  Company Number: DE-AMGEN-DEUSP2011036498

PATIENT
  Age: 71 Year
  Sex: Male
  Weight: 90 kg

DRUGS (4)
  1. NPLATE [Suspect]
     Indication: MYELODYSPLASTIC SYNDROME
     Dosage: 10 A?G/KG, QWK
     Route: 058
     Dates: start: 20100301, end: 20110719
  2. MICTONORM [Concomitant]
     Dosage: 30 MG, QD
     Route: 048
  3. SILODOSIN [Concomitant]
     Route: 048
  4. MOVICOL                            /01625101/ [Concomitant]
     Dosage: UNK UNK, PRN
     Route: 048

REACTIONS (2)
  - THERAPEUTIC RESPONSE DECREASED [None]
  - PLATELET COUNT DECREASED [None]
